FAERS Safety Report 11281400 (Version 2)
Quarter: 2015Q3

REPORT INFORMATION
  Report Type: Spontaneous
  Country: US (occurrence: US)
  Receive Date: 20150717
  Receipt Date: 20150720
  Transmission Date: 20151125
  Serious: No
  Sender: FDA-Public Use
  Company Number: US-IMPAX LABORATORIES, INC-IMP_07650_2014

PATIENT
  Age: 69 Year
  Sex: Female
  Weight: 63 kg

DRUGS (4)
  1. NEURONTIN [Concomitant]
     Active Substance: GABAPENTIN
     Indication: NEURALGIA
  2. TYLENOL [Concomitant]
     Active Substance: ACETAMINOPHEN
  3. MIDODRINE HYDROCHLORIDE. [Suspect]
     Active Substance: MIDODRINE HYDROCHLORIDE
     Indication: HYPOTENSION
     Route: 048
     Dates: start: 201404, end: 2014
  4. BENADRYL [Concomitant]
     Active Substance: DIPHENHYDRAMINE HYDROCHLORIDE
     Indication: MULTIPLE ALLERGIES

REACTIONS (4)
  - Drug ineffective [Recovered/Resolved]
  - Discomfort [Recovered/Resolved]
  - Product quality issue [Unknown]
  - Lethargy [Recovered/Resolved]

NARRATIVE: CASE EVENT DATE: 201404
